FAERS Safety Report 8369601-2 (Version None)
Quarter: 2012Q2

REPORT INFORMATION
  Report Type: 
  Country: None (occurrence: None)
  Receive Date: 20120518
  Receipt Date: 20120515
  Transmission Date: 20120825
  Serious: Yes (Other)
  Sender: FDA-Public Use
  Company Number: GB-EISAI INC-E2080-00493-SPO-GB

PATIENT
  Age: 13 Year
  Sex: Female
  Weight: 76.2 kg

DRUGS (4)
  1. INOVELON [Suspect]
     Route: 048
     Dates: start: 20120510
  2. INOVELON [Suspect]
     Dosage: UP TITRATION 800MG BID
     Route: 048
     Dates: start: 20120401, end: 20120501
  3. INOVELON [Suspect]
     Indication: EPILEPSY
     Dosage: UNKNOWN
     Route: 048
     Dates: start: 20120101, end: 20120401
  4. INOVELON [Suspect]
     Dosage: 200 MG AM 400 MG PM
     Route: 048
     Dates: start: 20120501, end: 20120509

REACTIONS (5)
  - CATATONIA [None]
  - WEIGHT DECREASED [None]
  - DEPRESSION [None]
  - CRYING [None]
  - INCONTINENCE [None]
